FAERS Safety Report 5386066-3 (Version None)
Quarter: 2007Q3

REPORT INFORMATION
  Report Type: 
  Country: None (occurrence: None)
  Receive Date: 20070710
  Receipt Date: 20070702
  Transmission Date: 20080115
  Serious: Yes (Hospitalization)
  Sender: FDA-Public Use
  Company Number: 2007SP002133

PATIENT
  Age: 77 Year
  Sex: Female
  Weight: 87.3 kg

DRUGS (10)
  1. LUNESTA [Suspect]
     Indication: INSOMNIA
     Dosage: 2 MG;HS; ORAL
     Route: 048
     Dates: start: 20060304
  2. LISINOPRIL [Concomitant]
  3. PRAVASTATIN [Concomitant]
  4. ASPRINE [Concomitant]
  5. IBUPROFEN [Concomitant]
  6. ATROVENT [Concomitant]
  7. DOLOMITE [Concomitant]
  8. VITAMIN B COMPLEX CAP [Concomitant]
  9. XOPENEX [Concomitant]
  10. ULTRAM [Concomitant]

REACTIONS (8)
  - ASTHENIA [None]
  - BLOOD GLUCOSE INCREASED [None]
  - CHEST PAIN [None]
  - HYPERHIDROSIS [None]
  - HYPOXIA [None]
  - NAUSEA [None]
  - SLEEP APNOEA SYNDROME [None]
  - VOMITING [None]
